FAERS Safety Report 9495442 (Version 1)
Quarter: 2013Q3

REPORT INFORMATION
  Report Type: Spontaneous
  Country: US (occurrence: US)
  Receive Date: 20130903
  Receipt Date: 20130903
  Transmission Date: 20140515
  Serious: No
  Sender: FDA-Public Use
  Company Number: US-PFIZER INC-2013251342

PATIENT
  Age: 28 Year
  Sex: Female
  Weight: 96.15 kg

DRUGS (16)
  1. ZOLOFT [Suspect]
     Indication: ANXIETY
     Dosage: 150 MG, 1X/DAY
     Dates: start: 2008
  2. ZOLOFT [Suspect]
     Indication: PANIC ATTACK
  3. LEVOTHYROXINE [Concomitant]
     Indication: AUTOIMMUNE THYROIDITIS
     Dosage: 150 UG, 1X/DAY
  4. FAMOTIDINE [Concomitant]
     Indication: GASTRIC DISORDER
     Dosage: 20 MG, AS NEEDED
  5. SYMBICORT [Concomitant]
     Indication: ASTHMA
     Dosage: 80/4.5 MCG, AS NEEDED
  6. DICLOFENAC [Concomitant]
     Indication: PAIN
     Dosage: 50 MG, 1X/DAY
  7. CYCLOBENZAPRINE [Concomitant]
     Indication: MUSCLE SPASMS
     Dosage: 5 MG, AS NEEDED
  8. MECLIZINE [Concomitant]
     Indication: NAUSEA
     Dosage: 25 MG, AS NEEDED
  9. PROAIR HFA [Concomitant]
     Indication: ASTHMA
     Dosage: UNK, AS NEEDED
  10. RIZATRIPTAN [Concomitant]
     Indication: MIGRAINE
     Dosage: 10 MG, AS NEEDED
  11. ALEVE [Concomitant]
     Indication: COSTOCHONDRITIS
     Dosage: 220 MG, AS NEEDED
  12. LOESTRIN FE [Concomitant]
     Indication: CONTRACEPTION
     Dosage: 1 MG/10 MCG/10 MCG, 1X/DAY
     Route: 048
  13. HYDROXYZINE [Concomitant]
     Indication: URTICARIA
     Dosage: 25 MG, AS NEEDED
  14. PERCOCET [Concomitant]
     Indication: PAIN
     Dosage: 0.5 DF, AS NEEDED (1/2 TABLET OF 10/325 MG)
     Route: 048
  15. ALPRAZOLAM [Concomitant]
     Indication: ANXIETY
     Dosage: 0.5 MG, AS NEEDED (1/2 TABLET OF 1 MG)
     Route: 048
  16. ALPRAZOLAM [Concomitant]
     Indication: PANIC ATTACK

REACTIONS (1)
  - Drug withdrawal syndrome [Recovered/Resolved]
